FAERS Safety Report 18820131 (Version 13)
Quarter: 2021Q4

REPORT INFORMATION
  Report Type: Report from Study
  Country: US (occurrence: US)
  Receive Date: 20210201
  Receipt Date: 20211229
  Transmission Date: 20220303
  Serious: Yes (Hospitalization, Other)
  Sender: FDA-Public Use
  Company Number: NVSC2019US094882

PATIENT
  Age: 65 Year
  Sex: Male
  Weight: 74.1 kg

DRUGS (88)
  1. DABRAFENIB [Suspect]
     Active Substance: DABRAFENIB
     Indication: Anaplastic thyroid cancer
     Dosage: 150 MG, BID
     Route: 048
     Dates: start: 20181109
  2. DABRAFENIB [Suspect]
     Active Substance: DABRAFENIB
     Dosage: 150 MG, BID
     Route: 048
     Dates: start: 20181205
  3. DABRAFENIB [Suspect]
     Active Substance: DABRAFENIB
     Dosage: 150 MG, BID
     Route: 048
     Dates: start: 20190102
  4. DABRAFENIB [Suspect]
     Active Substance: DABRAFENIB
     Dosage: 150 MG, BID
     Route: 048
     Dates: start: 20190103
  5. DABRAFENIB [Suspect]
     Active Substance: DABRAFENIB
     Dosage: 150 MG, BID
     Route: 048
     Dates: start: 20190201
  6. DABRAFENIB [Suspect]
     Active Substance: DABRAFENIB
     Dosage: 150 MG, BID
     Route: 048
     Dates: start: 20190227
  7. DABRAFENIB [Suspect]
     Active Substance: DABRAFENIB
     Dosage: 150 MG, BID
     Route: 048
     Dates: start: 20190228
  8. DABRAFENIB [Suspect]
     Active Substance: DABRAFENIB
     Dosage: 150 MG, BID
     Route: 048
     Dates: start: 20190327
  9. DABRAFENIB [Suspect]
     Active Substance: DABRAFENIB
     Dosage: 150 MG, BID
     Route: 048
     Dates: start: 20190417
  10. DABRAFENIB [Suspect]
     Active Substance: DABRAFENIB
     Dosage: 150 MG, BID
     Route: 048
     Dates: start: 20190420
  11. DABRAFENIB [Suspect]
     Active Substance: DABRAFENIB
     Dosage: 150 MG, BID
     Route: 048
     Dates: start: 20190424
  12. DABRAFENIB [Suspect]
     Active Substance: DABRAFENIB
     Dosage: 150 MG, BID
     Route: 048
     Dates: start: 20190426
  13. DABRAFENIB [Suspect]
     Active Substance: DABRAFENIB
     Dosage: 150 MG, BID
     Route: 048
     Dates: start: 20190428
  14. DABRAFENIB [Suspect]
     Active Substance: DABRAFENIB
     Dosage: 150 MG, BID
     Route: 048
     Dates: start: 20190514
  15. DABRAFENIB [Suspect]
     Active Substance: DABRAFENIB
     Dosage: 150 MG, BID
     Route: 048
     Dates: start: 20190618
  16. DABRAFENIB [Suspect]
     Active Substance: DABRAFENIB
     Dosage: 150 MG, BID
     Route: 048
     Dates: start: 20190815
  17. DABRAFENIB [Suspect]
     Active Substance: DABRAFENIB
     Dosage: 150 MG, BID
     Route: 048
     Dates: start: 20190910
  18. DABRAFENIB [Suspect]
     Active Substance: DABRAFENIB
     Dosage: 150 MG, BID
     Route: 048
     Dates: start: 20191009
  19. DABRAFENIB [Suspect]
     Active Substance: DABRAFENIB
     Dosage: 150 MG, BID
     Route: 048
     Dates: start: 20191109
  20. DABRAFENIB [Suspect]
     Active Substance: DABRAFENIB
     Dosage: 150 MG, BID
     Route: 048
     Dates: start: 20191203
  21. DABRAFENIB [Suspect]
     Active Substance: DABRAFENIB
     Dosage: 100 MG, BID
     Route: 048
     Dates: start: 20191204, end: 20200102
  22. DABRAFENIB [Suspect]
     Active Substance: DABRAFENIB
     Dosage: 150 MG, BID
     Route: 048
     Dates: start: 20200128
  23. DABRAFENIB [Suspect]
     Active Substance: DABRAFENIB
     Dosage: 150 MG, BID
     Route: 048
     Dates: start: 20200317, end: 20200420
  24. DABRAFENIB [Suspect]
     Active Substance: DABRAFENIB
     Dosage: 150 MG, BID
     Route: 048
     Dates: start: 20200421, end: 20200527
  25. DABRAFENIB [Suspect]
     Active Substance: DABRAFENIB
     Dosage: 150 MG, BID
     Route: 048
     Dates: start: 20200528, end: 20200617
  26. DABRAFENIB [Suspect]
     Active Substance: DABRAFENIB
     Dosage: 100 MG, BID
     Route: 048
     Dates: start: 20200529
  27. DABRAFENIB [Suspect]
     Active Substance: DABRAFENIB
     Dosage: 150 MG, BID
     Route: 048
     Dates: start: 20200716
  28. DABRAFENIB [Suspect]
     Active Substance: DABRAFENIB
     Dosage: 150 MG, BID (VIA PEG TUBE)
     Route: 048
     Dates: start: 20200813, end: 20200916
  29. DABRAFENIB [Suspect]
     Active Substance: DABRAFENIB
     Dosage: 150 MG, BID (VIA PEG TUBE)
     Route: 048
     Dates: start: 20200917, end: 20201007
  30. DABRAFENIB [Suspect]
     Active Substance: DABRAFENIB
     Dosage: 150 MG, BID (VIA PEG TUBE)
     Route: 048
     Dates: start: 20201008, end: 20201104
  31. DABRAFENIB [Suspect]
     Active Substance: DABRAFENIB
     Dosage: 150 MG, BID (VIA PEG TUBE)
     Route: 048
     Dates: start: 20201105, end: 20201208
  32. DABRAFENIB [Suspect]
     Active Substance: DABRAFENIB
     Dosage: 150 MG, BID
     Route: 048
     Dates: start: 20201209
  33. DABRAFENIB [Suspect]
     Active Substance: DABRAFENIB
     Dosage: 150 MG, BID (VIA PEG TUBE)
     Route: 048
     Dates: start: 20201230, end: 20210127
  34. DABRAFENIB [Suspect]
     Active Substance: DABRAFENIB
     Dosage: 150 MG, BID (VIA PEG TUBE)
     Route: 048
     Dates: start: 20210128, end: 20210224
  35. DABRAFENIB [Suspect]
     Active Substance: DABRAFENIB
     Dosage: 150 MG, BIDVIA PEG TUBE
     Route: 048
     Dates: start: 20210225, end: 20210324
  36. DABRAFENIB [Suspect]
     Active Substance: DABRAFENIB
     Dosage: 150 MG, BIDVIA PEG TUBE
     Route: 048
     Dates: start: 20210325
  37. DABRAFENIB [Suspect]
     Active Substance: DABRAFENIB
     Dosage: 150 MG, BIDVIA PEG TUBE
     Route: 048
     Dates: start: 20210617
  38. TRAMETINIB [Suspect]
     Active Substance: TRAMETINIB
     Indication: Anaplastic thyroid cancer
     Dosage: 2 MG, QD
     Route: 048
     Dates: start: 20181109
  39. TRAMETINIB [Suspect]
     Active Substance: TRAMETINIB
     Dosage: 2 MG, QD
     Route: 048
     Dates: start: 20181205
  40. TRAMETINIB [Suspect]
     Active Substance: TRAMETINIB
     Dosage: 2 MG, QD
     Route: 048
     Dates: start: 20190102
  41. TRAMETINIB [Suspect]
     Active Substance: TRAMETINIB
     Dosage: 2 MG, QD
     Route: 048
     Dates: start: 20190103
  42. TRAMETINIB [Suspect]
     Active Substance: TRAMETINIB
     Dosage: 2 MG, QD
     Route: 048
     Dates: start: 20190201
  43. TRAMETINIB [Suspect]
     Active Substance: TRAMETINIB
     Dosage: 2 MG, QD
     Route: 048
     Dates: start: 20190227
  44. TRAMETINIB [Suspect]
     Active Substance: TRAMETINIB
     Dosage: 2 MG, QD
     Route: 048
     Dates: start: 20190228
  45. TRAMETINIB [Suspect]
     Active Substance: TRAMETINIB
     Dosage: 2 MG, QD
     Route: 048
     Dates: start: 20190327
  46. TRAMETINIB [Suspect]
     Active Substance: TRAMETINIB
     Dosage: 2 MG, QD
     Route: 048
     Dates: start: 20190417
  47. TRAMETINIB [Suspect]
     Active Substance: TRAMETINIB
     Dosage: 2 MG, QD
     Route: 048
     Dates: start: 20190420
  48. TRAMETINIB [Suspect]
     Active Substance: TRAMETINIB
     Dosage: 2 MG, QD
     Route: 048
     Dates: start: 20190424
  49. TRAMETINIB [Suspect]
     Active Substance: TRAMETINIB
     Dosage: 2 MG, QD
     Route: 048
     Dates: start: 20190426
  50. TRAMETINIB [Suspect]
     Active Substance: TRAMETINIB
     Dosage: 2 MG, QD
     Route: 048
     Dates: start: 20190428
  51. TRAMETINIB [Suspect]
     Active Substance: TRAMETINIB
     Dosage: 2 MG, QD
     Route: 048
     Dates: start: 20190514
  52. TRAMETINIB [Suspect]
     Active Substance: TRAMETINIB
     Dosage: 2 MG, QD
     Route: 048
     Dates: start: 20190618
  53. TRAMETINIB [Suspect]
     Active Substance: TRAMETINIB
     Dosage: 2 MG, QD
     Route: 048
     Dates: start: 20190815
  54. TRAMETINIB [Suspect]
     Active Substance: TRAMETINIB
     Dosage: 2 MG, QD
     Route: 048
     Dates: start: 20190910
  55. TRAMETINIB [Suspect]
     Active Substance: TRAMETINIB
     Dosage: 2 MG, QD
     Route: 048
     Dates: start: 20191009
  56. TRAMETINIB [Suspect]
     Active Substance: TRAMETINIB
     Dosage: 2 MG, QD
     Route: 048
     Dates: start: 20191109
  57. TRAMETINIB [Suspect]
     Active Substance: TRAMETINIB
     Dosage: 2 MG, QD
     Route: 048
     Dates: start: 20191203
  58. TRAMETINIB [Suspect]
     Active Substance: TRAMETINIB
     Dosage: 1.5 MG, QD
     Route: 048
     Dates: start: 20191204, end: 20200102
  59. TRAMETINIB [Suspect]
     Active Substance: TRAMETINIB
     Dosage: 2 MG, QD
     Route: 048
     Dates: start: 20200128, end: 20200226
  60. TRAMETINIB [Suspect]
     Active Substance: TRAMETINIB
     Dosage: 2 MG, QD
     Route: 048
     Dates: start: 20200317, end: 20200420
  61. TRAMETINIB [Suspect]
     Active Substance: TRAMETINIB
     Dosage: 2 MG, QD
     Route: 048
     Dates: start: 20200421, end: 20200527
  62. TRAMETINIB [Suspect]
     Active Substance: TRAMETINIB
     Dosage: 2 MG, QD
     Route: 048
     Dates: start: 20200528, end: 20200617
  63. TRAMETINIB [Suspect]
     Active Substance: TRAMETINIB
     Dosage: 1.5 MG, QD
     Route: 048
     Dates: start: 20200529
  64. TRAMETINIB [Suspect]
     Active Substance: TRAMETINIB
     Dosage: 2 MG, QD
     Route: 048
     Dates: start: 20200716, end: 20200812
  65. TRAMETINIB [Suspect]
     Active Substance: TRAMETINIB
     Dosage: 2 MG, QD
     Route: 048
     Dates: start: 20200813, end: 20200916
  66. TRAMETINIB [Suspect]
     Active Substance: TRAMETINIB
     Dosage: 2 MG, QD
     Route: 048
     Dates: start: 20200917, end: 20201007
  67. TRAMETINIB [Suspect]
     Active Substance: TRAMETINIB
     Dosage: 2 MG, QD (VIA PEG TUBE)
     Route: 048
     Dates: start: 20201008, end: 20201104
  68. TRAMETINIB [Suspect]
     Active Substance: TRAMETINIB
     Dosage: 2 MG, QD (VIA PEG TUBE)
     Route: 048
     Dates: start: 20201105, end: 20201208
  69. TRAMETINIB [Suspect]
     Active Substance: TRAMETINIB
     Dosage: 2 MG, QD
     Route: 048
     Dates: start: 20201209
  70. TRAMETINIB [Suspect]
     Active Substance: TRAMETINIB
     Dosage: 2 MG, QD (VIA PEG TUBE)
     Route: 048
     Dates: start: 20201230, end: 20210127
  71. TRAMETINIB [Suspect]
     Active Substance: TRAMETINIB
     Dosage: 2 MG, QD (VIA PEG TUBE)
     Route: 048
     Dates: start: 20210128, end: 20210224
  72. TRAMETINIB [Suspect]
     Active Substance: TRAMETINIB
     Dosage: 2 MG, QD (VIA PEG TUBE)
     Route: 048
     Dates: start: 20210225, end: 20210324
  73. TRAMETINIB [Suspect]
     Active Substance: TRAMETINIB
     Dosage: 2 MG, QD (VIA PEG TUBE)
     Route: 048
     Dates: start: 20210325
  74. TRAMETINIB [Suspect]
     Active Substance: TRAMETINIB
     Dosage: 2 MG, QD (VIA PEG TUBE)
     Route: 048
     Dates: start: 20210617
  75. PEMBROLIZUMAB [Suspect]
     Active Substance: PEMBROLIZUMAB
     Indication: Product used for unknown indication
     Dosage: UNK
     Route: 065
     Dates: start: 20191022, end: 20191203
  76. PEMBROLIZUMAB [Suspect]
     Active Substance: PEMBROLIZUMAB
     Dosage: UNK
     Route: 065
     Dates: end: 20191224
  77. ATEZOLIZUMAB [Concomitant]
     Active Substance: ATEZOLIZUMAB
     Indication: Product used for unknown indication
     Dosage: UNK
     Route: 065
     Dates: start: 20181025
  78. ABRAXANE [Concomitant]
     Active Substance: PACLITAXEL
     Indication: Product used for unknown indication
     Dosage: UNK
     Route: 065
     Dates: start: 20181025
  79. LOVENOX [Concomitant]
     Active Substance: ENOXAPARIN SODIUM
     Indication: Jugular vein thrombosis
     Dosage: 40 MG, UNK
     Route: 065
     Dates: start: 20181227
  80. NORCO [Concomitant]
     Active Substance: ACETAMINOPHEN\HYDROCODONE BITARTRATE
     Indication: Pain
     Dosage: UNK (5/325 MG)
     Route: 065
  81. APIXABAN [Concomitant]
     Active Substance: APIXABAN
     Indication: Thrombosis
     Dosage: 2.5 MG, UNK
     Route: 065
     Dates: start: 20181228, end: 20190417
  82. FUROSEMIDE [Concomitant]
     Active Substance: FUROSEMIDE
     Indication: Oedema
     Dosage: 20 MG, UNK
     Route: 065
     Dates: start: 20190116, end: 20190227
  83. ALBUTEROL [Concomitant]
     Active Substance: ALBUTEROL
     Indication: Dyspnoea
     Dosage: 2.5 OT (2.5-0.5MG/3ML)
     Route: 065
     Dates: start: 2018
  84. ALBUTEROL [Concomitant]
     Active Substance: ALBUTEROL
     Indication: Respiratory disorder
     Dosage: 2.5 OT
     Route: 065
     Dates: start: 20181108, end: 20190201
  85. IPRATROPIUM [Concomitant]
     Active Substance: IPRATROPIUM
     Indication: Dyspnoea
     Dosage: 0.5MG/3ML
     Route: 065
     Dates: start: 20181108
  86. IPRATROPIUM [Concomitant]
     Active Substance: IPRATROPIUM
     Dosage: 0.5MG/3ML
     Route: 065
     Dates: start: 2018
  87. IBUPROFEN [Concomitant]
     Active Substance: IBUPROFEN
     Indication: Product used for unknown indication
     Route: 065
  88. ACETAMINOPHEN [Concomitant]
     Active Substance: ACETAMINOPHEN
     Indication: Product used for unknown indication
     Route: 065

REACTIONS (147)
  - Gastric haemorrhage [Recovered/Resolved]
  - Gastric haemorrhage [Recovered/Resolved with Sequelae]
  - Melaena [Recovered/Resolved]
  - Dizziness [Recovered/Resolved]
  - Hypoalbuminaemia [Not Recovered/Not Resolved]
  - Colitis [Unknown]
  - Rash [Unknown]
  - Hypokalaemia [Unknown]
  - Dermatitis [Unknown]
  - Anaemia [Recovered/Resolved with Sequelae]
  - Gastrointestinal fistula [Recovered/Resolved]
  - Hypertension [Recovered/Resolved]
  - Respiratory distress [Recovered/Resolved]
  - Hepatocellular carcinoma [Unknown]
  - Hypokalaemia [Recovered/Resolved]
  - Hypokalaemia [Recovered/Resolved]
  - Pruritus [Recovered/Resolved]
  - Rash maculo-papular [Recovered/Resolved]
  - Rash [Recovered/Resolved]
  - Hypertension [Recovered/Resolved]
  - Pruritus [Recovered/Resolved]
  - Hepatic neoplasm [Recovered/Resolved]
  - Alanine aminotransferase increased [Not Recovered/Not Resolved]
  - Second primary malignancy [Recovered/Resolved]
  - Hepatitis viral [Not Recovered/Not Resolved]
  - Fatigue [Not Recovered/Not Resolved]
  - Hypothyroidism [Not Recovered/Not Resolved]
  - Dry skin [Not Recovered/Not Resolved]
  - Oral pain [Recovered/Resolved]
  - White blood cell count increased [Recovered/Resolved]
  - White blood cell count increased [Recovered/Resolved]
  - Haemoptysis [Recovered/Resolved]
  - Neutrophil count increased [Recovered/Resolved]
  - Headache [Recovered/Resolved]
  - Hyperglycaemia [Recovered/Resolved]
  - Hypoalbuminaemia [Recovered/Resolved]
  - Dyspnoea [Recovered/Resolved]
  - Blood urea increased [Recovered/Resolved]
  - Soft tissue disorder [Recovered/Resolved]
  - Dysphonia [Not Recovered/Not Resolved]
  - Concomitant disease aggravated [Not Recovered/Not Resolved]
  - Hypokalaemia [Recovered/Resolved]
  - Pruritus [Recovered/Resolved]
  - Hypocalcaemia [Recovered/Resolved]
  - Lipase increased [Recovered/Resolved]
  - Blood creatinine decreased [Recovered/Resolved]
  - Hypoalbuminaemia [Recovered/Resolved]
  - Oedema peripheral [Recovered/Resolved]
  - Lymphocyte count decreased [Recovered/Resolved]
  - Lymphocyte count decreased [Recovered/Resolved]
  - Lymphocyte count decreased [Recovered/Resolved]
  - Lymphocyte count decreased [Not Recovered/Not Resolved]
  - Neutrophil count decreased [Recovered/Resolved]
  - Aspartate aminotransferase increased [Recovered/Resolved]
  - White blood cell count decreased [Recovered/Resolved]
  - Diarrhoea [Recovered/Resolved]
  - Aspartate aminotransferase increased [Recovered/Resolved]
  - Neutrophil count decreased [Recovered/Resolved]
  - Aspartate aminotransferase increased [Recovered/Resolved]
  - Aspartate aminotransferase increased [Recovered/Resolved]
  - Aspartate aminotransferase increased [Recovered/Resolved]
  - Aspartate aminotransferase increased [Recovered/Resolved]
  - White blood cell count decreased [Recovered/Resolved]
  - Neutrophil count decreased [Recovered/Resolved]
  - Neutrophil count decreased [Recovered/Resolved]
  - Rash [Recovered/Resolved]
  - White blood cell count decreased [Recovered/Resolved]
  - White blood cell count decreased [Not Recovered/Not Resolved]
  - Headache [Recovered/Resolved]
  - Headache [Recovered/Resolved]
  - Wrong technique in product usage process [Unknown]
  - Osteoarthritis [Recovered/Resolved]
  - Superficial vein thrombosis [Recovered/Resolved]
  - Pain in extremity [Recovered/Resolved]
  - Aspartate aminotransferase increased [Not Recovered/Not Resolved]
  - Hypertension [Recovered/Resolved]
  - Hypertension [Recovered/Resolved]
  - Blood alkaline phosphatase increased [Recovered/Resolved]
  - Hyperglycaemia [Recovered/Resolved]
  - Anaemia [Recovered/Resolved]
  - Blood creatinine decreased [Recovered/Resolved]
  - Hypoalbuminaemia [Recovered/Resolved]
  - Hypoalbuminaemia [Recovered/Resolved]
  - Hypoalbuminaemia [Recovered/Resolved]
  - Tachycardia [Recovered/Resolved]
  - Hypoalbuminaemia [Recovered/Resolved]
  - Oedema [Recovered/Resolved]
  - Gastrooesophageal reflux disease [Recovered/Resolved]
  - Pain in extremity [Recovered/Resolved]
  - Haemoptysis [Recovered/Resolved]
  - Pyrexia [Recovered/Resolved]
  - Blood iron decreased [Not Recovered/Not Resolved]
  - Anaemia [Not Recovered/Not Resolved]
  - Transferrin decreased [Not Recovered/Not Resolved]
  - Blood folate increased [Not Recovered/Not Resolved]
  - Dizziness [Recovered/Resolved]
  - Skin irritation [Recovered/Resolved]
  - Hyperglycaemia [Recovered/Resolved]
  - Pain [Recovered/Resolved]
  - Hyponatraemia [Recovered/Resolved]
  - Amylase increased [Recovered/Resolved]
  - Weight increased [Recovered/Resolved]
  - Protein total decreased [Recovered/Resolved]
  - Weight decreased [Recovered/Resolved]
  - Blood urea increased [Recovered/Resolved]
  - Protein total increased [Recovered/Resolved]
  - Weight increased [Not Recovered/Not Resolved]
  - Chills [Recovered/Resolved]
  - Blood bilirubin increased [Recovered/Resolved]
  - Blood chloride increased [Recovered/Resolved]
  - Hyperglycaemia [Recovered/Resolved]
  - Productive cough [Recovered/Resolved]
  - Anion gap decreased [Recovered/Resolved]
  - Dysphagia [Not Recovered/Not Resolved]
  - Decreased appetite [Not Recovered/Not Resolved]
  - Alanine aminotransferase increased [Recovered/Resolved]
  - Blood alkaline phosphatase increased [Not Recovered/Not Resolved]
  - Skin abrasion [Recovered/Resolved]
  - Blood urea increased [Recovered/Resolved]
  - Platelet count increased [Not Recovered/Not Resolved]
  - Oxygen saturation decreased [Recovered/Resolved]
  - Hypoalbuminaemia [Recovered/Resolved]
  - Cough [Recovered/Resolved]
  - Hypertension [Not Recovered/Not Resolved]
  - Blood urea increased [Recovered/Resolved]
  - Oedema peripheral [Not Recovered/Not Resolved]
  - White blood cell count decreased [Recovered/Resolved]
  - Hypoalbuminaemia [Recovered/Resolved]
  - Abdominal pain [Not Recovered/Not Resolved]
  - Anion gap decreased [Recovered/Resolved]
  - Neutrophil count decreased [Recovered/Resolved]
  - Rash maculo-papular [Not Recovered/Not Resolved]
  - Weight increased [Not Recovered/Not Resolved]
  - Hyperglycaemia [Not Recovered/Not Resolved]
  - Blood lactate dehydrogenase increased [Not Recovered/Not Resolved]
  - Nail ridging [Not Recovered/Not Resolved]
  - Lipase increased [Recovered/Resolved]
  - Hyponatraemia [Recovered/Resolved]
  - Blood urea increased [Recovered/Resolved]
  - Hypoproteinaemia [Not Recovered/Not Resolved]
  - Pain of skin [Not Recovered/Not Resolved]
  - Nausea [Recovered/Resolved]
  - White blood cell count increased [Not Recovered/Not Resolved]
  - Neutrophil count increased [Not Recovered/Not Resolved]
  - Hypocalcaemia [Recovered/Resolved]
  - Hypocalcaemia [Not Recovered/Not Resolved]
  - Skin abrasion [Not Recovered/Not Resolved]

NARRATIVE: CASE EVENT DATE: 20181109
